FAERS Safety Report 6144334-1 (Version None)
Quarter: 2009Q2

REPORT INFORMATION
  Report Type: 
  Country: None (occurrence: None)
  Receive Date: 20090406
  Receipt Date: 20090330
  Transmission Date: 20091009
  Serious: Yes (Other)
  Sender: FDA-Public Use
  Company Number: US-AVENTIS-200912631US

PATIENT
  Sex: Female

DRUGS (1)
  1. LOVENOX [Suspect]
     Dates: start: 20090101

REACTIONS (3)
  - ABDOMINAL DISTENSION [None]
  - FIBRINOLYSIS INCREASED [None]
  - NODULE [None]
